FAERS Safety Report 9764168 (Version 1)
Quarter: 2013Q4

REPORT INFORMATION
  Report Type: Spontaneous
  Country: US (occurrence: US)
  Receive Date: 20131216
  Receipt Date: 20131216
  Transmission Date: 20140711
  Serious: Yes (Other)
  Sender: FDA-Public Use
  Company Number: PHEH2013US025711

PATIENT
  Sex: Female

DRUGS (2)
  1. DIOVAN [Suspect]
     Dosage: 2 UKN(160MG), QD
  2. DIOVAN [Suspect]
     Dosage: 1 UKN(160MG), QD

REACTIONS (3)
  - Diabetes mellitus [Unknown]
  - Thyroid disorder [Unknown]
  - Cardiac disorder [Unknown]
